FAERS Safety Report 18006768 (Version 3)
Quarter: 2020Q3

REPORT INFORMATION
  Report Type: Spontaneous
  Country: RO (occurrence: RO)
  Receive Date: 20200710
  Receipt Date: 20200716
  Transmission Date: 20201103
  Serious: Yes (Death, Hospitalization, Disabling)
  Sender: FDA-Public Use
  Company Number: RO-ABBVIE-20K-135-3475082-00

PATIENT
  Age: 72 Year
  Sex: Male

DRUGS (3)
  1. RITUXIMAB. [Concomitant]
     Active Substance: RITUXIMAB
     Indication: PRODUCT USED FOR UNKNOWN INDICATION
  2. VENCLYXTO [Suspect]
     Active Substance: VENETOCLAX
     Indication: CHRONIC LYMPHOCYTIC LEUKAEMIA
     Route: 048
     Dates: start: 20200619, end: 20200626
  3. ENTECAVIR. [Concomitant]
     Active Substance: ENTECAVIR
     Indication: LIVER DISORDER

REACTIONS (9)
  - Serratia infection [Fatal]
  - Motor dysfunction [Recovering/Resolving]
  - Neutropenia [Fatal]
  - White blood cell count decreased [Unknown]
  - Hemiparesis [Recovering/Resolving]
  - Pyrexia [Recovered/Resolved]
  - Pneumonia [Fatal]
  - Gait disturbance [Unknown]
  - Viral infection [Unknown]

NARRATIVE: CASE EVENT DATE: 2020
